FAERS Safety Report 6960232-5 (Version None)
Quarter: 2010Q3

REPORT INFORMATION
  Report Type: 
  Country: None (occurrence: None)
  Receive Date: 20100901
  Receipt Date: 20100825
  Transmission Date: 20110219
  Serious: Yes (Death)
  Sender: FDA-Public Use
  Company Number: GB-ELI_LILLY_AND_COMPANY-GB201008007622

PATIENT

DRUGS (2)
  1. EXENATIDE [Suspect]
     Indication: OBESITY
     Dosage: UNK, UNKNOWN
     Route: 065
     Dates: start: 20071001
  2. REGULAR INSULIN [Concomitant]
     Indication: TYPE 2 DIABETES MELLITUS
     Dosage: UNK, UNKNOWN
     Route: 065

REACTIONS (2)
  - CARDIAC DEATH [None]
  - OFF LABEL USE [None]
